FAERS Safety Report 14822516 (Version 1)
Quarter: 2018Q2

REPORT INFORMATION
  Report Type: Spontaneous
  Country: US (occurrence: US)
  Receive Date: 20180427
  Receipt Date: 20180427
  Transmission Date: 20180711
  Serious: Yes (Life-Threatening, Hospitalization)
  Sender: FDA-Public Use
  Company Number: US-ASTRAZENECA-2018SE57063

PATIENT
  Age: 21766 Day
  Sex: Female
  Weight: 106.6 kg

DRUGS (1)
  1. BYDUREON [Suspect]
     Active Substance: EXENATIDE
     Route: 058

REACTIONS (10)
  - Weight decreased [Unknown]
  - Blood disorder [Unknown]
  - Haemorrhage [Unknown]
  - Apparent death [Unknown]
  - Coagulopathy [Unknown]
  - Amnesia [Unknown]
  - Product quality issue [Unknown]
  - Hypothyroidism [Unknown]
  - Drug dose omission [Not Recovered/Not Resolved]
  - Malaise [Unknown]

NARRATIVE: CASE EVENT DATE: 20170901
